FAERS Safety Report 7683591-7 (Version None)
Quarter: 2011Q3

REPORT INFORMATION
  Report Type: 
  Country: None (occurrence: None)
  Receive Date: 20110815
  Receipt Date: 20110808
  Transmission Date: 20111222
  Serious: Yes (Hospitalization)
  Sender: FDA-Public Use
  Company Number: US-VERTEX PHARMACEUTICALS INC.-AE-2011-000799

PATIENT
  Sex: Female

DRUGS (5)
  1. PEGINTERFERON [Concomitant]
     Indication: HEPATITIS C
     Route: 058
     Dates: start: 20110629
  2. REBETOL [Concomitant]
     Indication: HEPATITIS C
     Route: 048
     Dates: start: 20110627
  3. SYNTHROID [Concomitant]
  4. SPIRONOLACTONE [Concomitant]
  5. INCIVEK [Suspect]
     Indication: HEPATITIS C
     Route: 048
     Dates: start: 20110627

REACTIONS (8)
  - LETHARGY [None]
  - ASTHENIA [None]
  - CONFUSIONAL STATE [None]
  - POSTMENOPAUSAL HAEMORRHAGE [None]
  - WEIGHT DECREASED [None]
  - ANAEMIA [None]
  - INCREASED TENDENCY TO BRUISE [None]
  - DISORIENTATION [None]
